FAERS Safety Report 11295781 (Version 1)
Quarter: 2015Q3

REPORT INFORMATION
  Report Type: Spontaneous
  Country: US (occurrence: US)
  Receive Date: 20150722
  Receipt Date: 20150722
  Transmission Date: 20151125
  Serious: No
  Sender: FDA-Public Use
  Company Number: US-ELI_LILLY_AND_COMPANY-US200906003551

PATIENT
  Sex: Female

DRUGS (1)
  1. EVISTA [Suspect]
     Active Substance: RALOXIFENE HYDROCHLORIDE
     Dosage: UNK, UNKNOWN
     Route: 065
     Dates: start: 200905, end: 20090613

REACTIONS (6)
  - Pain in extremity [Unknown]
  - Hypersomnia [Recovered/Resolved]
  - Malaise [Unknown]
  - Asthenia [Unknown]
  - Discomfort [Unknown]
  - Feeling abnormal [Unknown]
